FAERS Safety Report 10779067 (Version 1)
Quarter: 2015Q1

REPORT INFORMATION
  Report Type: Spontaneous
  Country: PT (occurrence: PT)
  Receive Date: 20150210
  Receipt Date: 20150210
  Transmission Date: 20150721
  Serious: Yes (Hospitalization, Other)
  Sender: FDA-Public Use
  Company Number: PT-JNJFOC-20150119655

PATIENT
  Age: 63 Year
  Sex: Male

DRUGS (3)
  1. FENTANYL. [Concomitant]
     Active Substance: FENTANYL
     Indication: PAIN MANAGEMENT
     Route: 065
  2. TAPENTADOL [Concomitant]
     Active Substance: TAPENTADOL
     Indication: PAIN MANAGEMENT
     Route: 065
  3. ZYTIGA [Suspect]
     Active Substance: ABIRATERONE ACETATE
     Indication: PRODUCT USED FOR UNKNOWN INDICATION
     Route: 048

REACTIONS (1)
  - Lacunar infarction [Recovered/Resolved]

NARRATIVE: CASE EVENT DATE: 20150115
